FAERS Safety Report 13082610 (Version 1)
Quarter: 2017Q1

REPORT INFORMATION
  Report Type: Spontaneous
  Country: US (occurrence: US)
  Receive Date: 20170103
  Receipt Date: 20170103
  Transmission Date: 20170428
  Serious: Yes (Death)
  Sender: FDA-Public Use
  Company Number: US-RELYPSA-RLY2016004579

PATIENT
  Sex: Female

DRUGS (9)
  1. VELTASSA [Suspect]
     Active Substance: PATIROMER
     Indication: HYPERKALAEMIA
     Dosage: 16.8 G, QD
     Route: 048
     Dates: start: 20160519
  2. CALCITRIOL. [Concomitant]
     Active Substance: CALCITRIOL
  3. RENAVIT [Concomitant]
  4. ULORIC [Concomitant]
     Active Substance: FEBUXOSTAT
  5. VALSARTAN. [Concomitant]
     Active Substance: VALSARTAN
  6. PROCRIT [Concomitant]
     Active Substance: ERYTHROPOIETIN
  7. JANUVIA [Concomitant]
     Active Substance: SITAGLIPTIN PHOSPHATE
  8. LASIX [Concomitant]
     Active Substance: FUROSEMIDE
  9. SODIUM BICARBONATE. [Concomitant]
     Active Substance: SODIUM BICARBONATE

REACTIONS (1)
  - Death [Fatal]

NARRATIVE: CASE EVENT DATE: 2016
